FAERS Safety Report 4751741-8 (Version None)
Quarter: 2005Q3

REPORT INFORMATION
  Report Type: 
  Country: None (occurrence: None)
  Receive Date: 20050822
  Receipt Date: 20050822
  Transmission Date: 20060218
  Serious: Yes (Other)
  Sender: FDA-Public Use
  Company Number: None

PATIENT
  Age: 34 Year
  Sex: Female
  Weight: 74.8435 kg

DRUGS (1)
  1. PAXIL [Suspect]
     Indication: ANXIETY
     Dosage: ONCE DAILY     PO
     Route: 048
     Dates: start: 19990307, end: 20050807

REACTIONS (9)
  - DISTURBANCE IN ATTENTION [None]
  - EATING DISORDER [None]
  - HEADACHE [None]
  - INDIFFERENCE [None]
  - INSOMNIA [None]
  - MENTAL DISORDER [None]
  - NIGHTMARE [None]
  - PARAESTHESIA [None]
  - THINKING ABNORMAL [None]
